FAERS Safety Report 5821109-1 (Version None)
Quarter: 2008Q3

REPORT INFORMATION
  Report Type: 
  Country: None (occurrence: None)
  Receive Date: 20080724
  Receipt Date: 20080717
  Transmission Date: 20090109
  Serious: Yes (Other)
  Sender: FDA-Public Use
  Company Number: AU-WATSON-2008-04333

PATIENT
  Age: 34 Year
  Sex: Male

DRUGS (1)
  1. OXYCODONE HYDROCHLORIDE AND ACETAMINOPHEN [Suspect]
     Indication: ANALGESIA
     Dosage: 40MG QAM, 20MG QPM
     Route: 048
     Dates: start: 20060501

REACTIONS (1)
  - HEPATITIS CHOLESTATIC [None]
